FAERS Safety Report 16631739 (Version 1)
Quarter: 2019Q3

REPORT INFORMATION
  Report Type: Spontaneous
  Country: FR (occurrence: FR)
  Receive Date: 20190725
  Receipt Date: 20190725
  Transmission Date: 20191004
  Serious: Yes (Other)
  Sender: FDA-Public Use
  Company Number: FR-ALLERGAN-1919117US

PATIENT
  Sex: Female

DRUGS (21)
  1. INDOCOLLYRE [Suspect]
     Active Substance: INDOMETHACIN
     Dosage: 1 GTT, QD
     Route: 047
     Dates: start: 20190310, end: 20190413
  2. VITABACT [Suspect]
     Active Substance: PICLOXYDINE DIHYDROCHLORIDE
     Indication: PREOPERATIVE CARE
     Dosage: UNK
     Route: 047
     Dates: start: 20190310, end: 20190312
  3. THEALOSE [Suspect]
     Active Substance: HYALURONATE SODIUM\TREHALOSE
     Indication: PRODUCT USED FOR UNKNOWN INDICATION
     Dosage: 1 GTT, QD
     Route: 065
     Dates: start: 20190516
  4. INSULIN [Concomitant]
     Active Substance: INSULIN NOS
     Dosage: UNK, BID (MORNING AND EVENING)
  5. TOBRADEX [Suspect]
     Active Substance: DEXAMETHASONE\TOBRAMYCIN
     Indication: POSTOPERATIVE CARE
     Dosage: 1 GTT, QD
     Route: 047
     Dates: start: 20190502, end: 2019
  6. VISMED [Suspect]
     Active Substance: HYALURONATE SODIUM
     Indication: EYE INFLAMMATION
     Dosage: STERILE SOLUTION FOR TOPICAL OPHTHALMIC USE; FOR 5 DAYS
     Route: 047
     Dates: end: 20190416
  7. VITAMINE B12 CHAUVIN [Suspect]
     Active Substance: CYANOCOBALAMIN
     Indication: PREOPERATIVE CARE
     Dosage: UNK, QD (IN SINGLE DOSE UNITS)
     Route: 047
     Dates: start: 20190413, end: 20190416
  8. VITAMINE A DULCIS [Suspect]
     Active Substance: RETINOL
     Indication: PRODUCT USED FOR UNKNOWN INDICATION
     Dosage: UNK
     Route: 065
     Dates: start: 201904, end: 20190502
  9. LACRYVISC [Suspect]
     Active Substance: CARBOMER
     Indication: PRODUCT USED FOR UNKNOWN INDICATION
     Dosage: UNK, QPM (ONCE AT BEDTIME)
     Route: 065
     Dates: start: 20190516, end: 2019
  10. REFRESH CELLUVISC [Suspect]
     Active Substance: CARBOXYMETHYLCELLULOSE SODIUM
     Dosage: UNK
     Route: 047
     Dates: start: 20190413, end: 20190416
  11. VISMED [Suspect]
     Active Substance: HYALURONATE SODIUM
     Indication: OCULAR HYPERTENSION
  12. VISMED [Suspect]
     Active Substance: HYALURONATE SODIUM
     Indication: EYE PAIN
  13. DACUDOSES [Suspect]
     Active Substance: BORIC ACID\SODIUM BORATE
     Indication: POSTOPERATIVE CARE
     Dosage: UNK
     Route: 047
     Dates: start: 20190313
  14. TOBREX [Suspect]
     Active Substance: TOBRAMYCIN
     Indication: PRODUCT USED FOR UNKNOWN INDICATION
     Dosage: UNK, QD
     Route: 065
     Dates: start: 20190421, end: 20190502
  15. REFRESH CELLUVISC [Suspect]
     Active Substance: CARBOXYMETHYLCELLULOSE SODIUM
     Indication: POSTOPERATIVE CARE
     Dosage: IN THE EVENING, RESTARTED
     Route: 047
     Dates: start: 2019
  16. TOBRADEX [Suspect]
     Active Substance: DEXAMETHASONE\TOBRAMYCIN
     Dosage: 1 GTT, QD
     Route: 047
     Dates: start: 20190313, end: 20190416
  17. MYDRIATICUM [Suspect]
     Active Substance: TROPICAMIDE
     Indication: POSTOPERATIVE CARE
     Dosage: 1 GTT, BID
     Route: 047
     Dates: start: 20190313, end: 20190416
  18. VITAMINE A FAURE [Suspect]
     Active Substance: RETINOL
     Indication: PRODUCT USED FOR UNKNOWN INDICATION
     Dosage: 4 GTT, QD
     Route: 047
     Dates: start: 20190502
  19. INDOCOLLYRE [Suspect]
     Active Substance: INDOMETHACIN
     Indication: POSTOPERATIVE CARE
     Dosage: 1 GTT, QD
     Route: 047
     Dates: start: 201904, end: 201904
  20. ODM5 [Suspect]
     Active Substance: HYALURONATE SODIUM\SODIUM CHLORIDE
     Indication: EYE OEDEMA
     Dosage: UNK
     Route: 047
     Dates: start: 20190410, end: 20190416
  21. SYSTANE BALANCE [Suspect]
     Active Substance: PROPYLENE GLYCOL
     Indication: PRODUCT USED FOR UNKNOWN INDICATION
     Dosage: 1 GTT
     Route: 065
     Dates: start: 20190516

REACTIONS (9)
  - Eye oedema [Unknown]
  - Ocular hypertension [Unknown]
  - Eye pain [Not Recovered/Not Resolved]
  - Foreign body sensation in eyes [Not Recovered/Not Resolved]
  - Keratitis [Recovered/Resolved]
  - Eye inflammation [Unknown]
  - Photophobia [Not Recovered/Not Resolved]
  - Sinusitis [Unknown]
  - Eye irritation [Not Recovered/Not Resolved]

NARRATIVE: CASE EVENT DATE: 2019
